FAERS Safety Report 23994000 (Version 2)
Quarter: 2024Q3

REPORT INFORMATION
  Report Type: Spontaneous
  Country: JP (occurrence: JP)
  Receive Date: 20240620
  Receipt Date: 20240705
  Transmission Date: 20241017
  Serious: Yes (Death, Life-Threatening, Other)
  Sender: ASTELLAS
  Company Number: JP-ASTELLAS-2024US017469

PATIENT
  Age: 70 Year
  Sex: Female

DRUGS (1)
  1. CRESEMBA [Suspect]
     Active Substance: ISAVUCONAZONIUM SULFATE
     Indication: Bronchopulmonary aspergillosis
     Dosage: 200 MG, ONCE DAILY (IN 1 DAY)(IN THE MORNING)
     Route: 041
     Dates: start: 20240603, end: 20240603

REACTIONS (3)
  - Leukaemia [Fatal]
  - Condition aggravated [Fatal]
  - Cerebral haemorrhage [Fatal]

NARRATIVE: CASE EVENT DATE: 20240603
